FAERS Safety Report 11367053 (Version 1)
Quarter: 2015Q3

REPORT INFORMATION
  Report Type: Spontaneous
  Country: US (occurrence: US)
  Receive Date: 20150811
  Receipt Date: 20150811
  Transmission Date: 20151125
  Serious: No
  Sender: FDA-Public Use
  Company Number: US-ELI_LILLY_AND_COMPANY-US201111002003

PATIENT
  Sex: Male

DRUGS (3)
  1. LOVASTATIN. [Concomitant]
     Active Substance: LOVASTATIN
     Dosage: UNK, UNKNOWN
     Route: 065
  2. AXIRON [Suspect]
     Active Substance: TESTOSTERONE
     Dosage: 60 MG, UNKNOWN
     Route: 065
  3. ATENOLOL. [Concomitant]
     Active Substance: ATENOLOL
     Dosage: UNK, UNKNOWN
     Route: 065

REACTIONS (1)
  - Acrochordon [Unknown]

NARRATIVE: CASE EVENT DATE: 20111013
